FAERS Safety Report 11632773 (Version 1)
Quarter: 2015Q4

REPORT INFORMATION
  Report Type: Spontaneous
  Country: US (occurrence: None)
  Receive Date: 20151014
  Receipt Date: 20151014
  Transmission Date: 20160304
  Serious: Yes (Disabling)
  Sender: FDA-Public Use
  Company Number: None

PATIENT
  Age: 25 Year
  Sex: Male
  Weight: 113.4 kg

DRUGS (5)
  1. DEXTROAMPHET [Concomitant]
  2. CELEXA [Concomitant]
     Active Substance: CITALOPRAM HYDROBROMIDE
  3. CALCIUM CITRATE MAXIMUM + D3 [Concomitant]
  4. BENZTROPINE 1MG [Suspect]
     Active Substance: BENZTROPINE
     Indication: RESTLESSNESS
     Route: 048
     Dates: start: 20151005, end: 20151011
  5. RISPERDAL [Concomitant]
     Active Substance: RISPERIDONE

REACTIONS (2)
  - Pruritus [None]
  - Hypoaesthesia [None]

NARRATIVE: CASE EVENT DATE: 20151013
